FAERS Safety Report 16942957 (Version 2)
Quarter: 2019Q4

REPORT INFORMATION
  Report Type: Spontaneous
  Country: DE (occurrence: DE)
  Receive Date: 20191021
  Receipt Date: 20191210
  Transmission Date: 20200122
  Serious: Yes (Other)
  Sender: FDA-Public Use
  Company Number: DE-ALLERGAN-1941926US

PATIENT
  Sex: Male

DRUGS (1)
  1. LUMIGAN [Suspect]
     Active Substance: BIMATOPROST
     Indication: OPEN ANGLE GLAUCOMA
     Dosage: ONCE DAILY
     Route: 065
     Dates: start: 20150701, end: 20191009

REACTIONS (2)
  - Lenticular opacities [Not Recovered/Not Resolved]
  - Cataract [Not Recovered/Not Resolved]
